FAERS Safety Report 21193428 (Version 1)
Quarter: 2022Q3

REPORT INFORMATION
  Report Type: Spontaneous
  Country: US (occurrence: US)
  Receive Date: 20220810
  Receipt Date: 20220810
  Transmission Date: 20221027
  Serious: Yes (Death, Life-Threatening, Other)
  Sender: FDA-Public Use
  Company Number: US-CELGENE-USA-20210506148

PATIENT
  Age: 68 Year
  Sex: Male
  Weight: 83 kg

DRUGS (1)
  1. BREYANZI [Suspect]
     Active Substance: LISOCABTAGENE MARALEUCEL
     Indication: Diffuse large B-cell lymphoma
     Dosage: FREQUENCY TEXT: ONCE?50 TO 110 X 10^6 CAR-POSITIVE VIABLE T CELLS (DOSE UNSPECIFIED)
     Route: 042
     Dates: start: 20210511, end: 20210511

REACTIONS (3)
  - Cardiac arrest [Fatal]
  - Cytokine release syndrome [Unknown]
  - Hyperkalaemia [Unknown]

NARRATIVE: CASE EVENT DATE: 20210513
